FAERS Safety Report 14703971 (Version 14)
Quarter: 2018Q2

REPORT INFORMATION
  Report Type: Spontaneous
  Country: JP (occurrence: JP)
  Receive Date: 20180402
  Receipt Date: 20180626
  Transmission Date: 20180711
  Serious: Yes (Other)
  Sender: FDA-Public Use
  Company Number: JP-UNITED THERAPEUTICS-UNT-2018-004410

PATIENT
  Age: 5 Decade
  Sex: Male
  Weight: 55 kg

DRUGS (7)
  1. REMODULIN [Suspect]
     Active Substance: TREPROSTINIL
     Dosage: DOSING RATE OF 24.5 MCL/H
     Route: 058
     Dates: start: 20180404
  2. REMODULIN [Suspect]
     Active Substance: TREPROSTINIL
     Indication: PULMONARY ARTERIAL HYPERTENSION
     Dosage: UNK
     Route: 041
     Dates: start: 20180302, end: 201803
  3. REMODULIN [Suspect]
     Active Substance: TREPROSTINIL
     Indication: PULMONARY ARTERIAL HYPERTENSION
     Dosage: UNK
     Route: 058
     Dates: start: 20180327
  4. REMODULIN [Suspect]
     Active Substance: TREPROSTINIL
     Dosage: DOSING RATE OF 24 MCL/H
     Route: 058
     Dates: start: 20180402
  5. REMODULIN [Suspect]
     Active Substance: TREPROSTINIL
     Dosage: DOSING RATE OF 26.5 MCL/H
     Route: 058
     Dates: start: 20180413
  6. REMODULIN [Suspect]
     Active Substance: TREPROSTINIL
     Dosage: DOSING RATE OF 30 MCL/H
     Route: 058
     Dates: start: 20180501
  7. PROCHLORPERAZINE. [Concomitant]
     Active Substance: PROCHLORPERAZINE
     Indication: VOMITING
     Dosage: UNK
     Route: 065

REACTIONS (16)
  - Clostridium difficile infection [Unknown]
  - Pseudomembranous colitis [Not Recovered/Not Resolved]
  - Abdominal pain [Unknown]
  - Malaise [Unknown]
  - Vasculitis [Recovered/Resolved]
  - Food poisoning [Unknown]
  - Pyrexia [Not Recovered/Not Resolved]
  - Haemoptysis [Unknown]
  - Device alarm issue [Unknown]
  - Influenza [Recovering/Resolving]
  - Flushing [Unknown]
  - Feeling hot [Unknown]
  - Bacterial test positive [Unknown]
  - Injection site pain [Unknown]
  - Sinusitis [Unknown]
  - Muscular weakness [Recovering/Resolving]

NARRATIVE: CASE EVENT DATE: 201803
